FAERS Safety Report 13519176 (Version 1)
Quarter: 2017Q2

REPORT INFORMATION
  Report Type: Spontaneous
  Country: None (occurrence: US)
  Receive Date: 20170505
  Receipt Date: 20170505
  Transmission Date: 20170830
  Serious: Yes (Other)
  Sender: FDA-Public Use
  Company Number: US-TEVA-764185ACC

PATIENT
  Age: 24 Year
  Sex: Female
  Weight: 90.8 kg

DRUGS (2)
  1. PARAGARD T 380A [Suspect]
     Active Substance: COPPER
     Indication: CONTRACEPTION
     Dates: start: 20160316
  2. VITAMIN D [Concomitant]
     Active Substance: CHOLECALCIFEROL

REACTIONS (3)
  - Device dislocation [Not Recovered/Not Resolved]
  - Vaginal discharge [Unknown]
  - Pelvic pain [Unknown]

NARRATIVE: CASE EVENT DATE: 20170417
